FAERS Safety Report 10671910 (Version 2)
Quarter: 2015Q1

REPORT INFORMATION
  Report Type: Spontaneous
  Country: US (occurrence: US)
  Receive Date: 20141223
  Receipt Date: 20150216
  Transmission Date: 20150720
  Serious: Yes (Death, Other)
  Sender: FDA-Public Use
  Company Number: US-ASTELLAS-2014US020948

PATIENT
  Age: 88 Year
  Sex: Male

DRUGS (2)
  1. XTANDI [Suspect]
     Active Substance: ENZALUTAMIDE
     Indication: PROSTATE CANCER
     Dosage: UNK, UNKNOWN FREQ.
     Route: 048
     Dates: start: 20140811
  2. XTANDI [Suspect]
     Active Substance: ENZALUTAMIDE
     Route: 048
     Dates: end: 20141114

REACTIONS (3)
  - Death [Fatal]
  - General physical health deterioration [Unknown]
  - Underdose [Unknown]

NARRATIVE: CASE EVENT DATE: 20141205
